FAERS Safety Report 9034401 (Version 2)
Quarter: 2013Q1

REPORT INFORMATION
  Report Type: Spontaneous
  Country: LB (occurrence: None)
  Receive Date: 20130114
  Receipt Date: 20130122
  Transmission Date: 20140127
  Serious: Yes (Death, Hospitalization)
  Sender: FDA-Public Use
  Company Number: DSA_61833_2013

PATIENT
  Sex: Female

DRUGS (4)
  1. FLUOROURACIL [Suspect]
     Indication: COLORECTAL CANCER METASTATIC
     Dosage: (DF)
     Route: 041
     Dates: start: 20121219, end: 20121219
  2. ZALTRAP [Suspect]
     Dosage: (4 MG/KD; EVERY OTHER WEEK INTRAVENOUS DRIP)
     Route: 041
     Dates: start: 20121219, end: 20121219
  3. IRINOTECAN (IRINOTECAN) [Suspect]
     Dosage: (DF)
     Route: 041
     Dates: start: 20121219, end: 20121219
  4. LEUCOVORIN [Suspect]
     Dosage: (DF)
     Route: 041
     Dates: start: 20121219, end: 20121219

REACTIONS (2)
  - Febrile neutropenia [None]
  - Hepatic failure [None]
